FAERS Safety Report 19899436 (Version 2)
Quarter: 2021Q3

REPORT INFORMATION
  Report Type: Spontaneous
  Country: CN (occurrence: CN)
  Receive Date: 20210929
  Receipt Date: 20210930
  Transmission Date: 20211014
  Serious: Yes (Death)
  Sender: FDA-Public Use
  Company Number: CN-BAYER-2021A218514

PATIENT
  Age: 63 Year
  Sex: Male

DRUGS (7)
  1. SODIUM VALPROATE [Suspect]
     Active Substance: VALPROATE SODIUM
     Indication: SEIZURE PROPHYLAXIS
     Dosage: 1.2 G, QD, PUMP IN
     Route: 042
     Dates: start: 202012, end: 20201229
  2. AVELOX [Suspect]
     Active Substance: MOXIFLOXACIN HYDROCHLORIDE
     Indication: PNEUMONIA
     Dosage: 0.4 G, QD
     Route: 041
     Dates: start: 20210101, end: 20210113
  3. CEFTEZOLE [Suspect]
     Active Substance: CEFTEZOLE SODIUM
     Indication: ANTI-INFECTIVE THERAPY
     Dosage: 2 G, BID
     Route: 041
     Dates: start: 202012, end: 20210101
  4. CEFOPERAZONE + SULBACTAM [Suspect]
     Active Substance: CEFOPERAZONE SODIUM\SULBACTAM
     Indication: PNEUMONIA
     Dosage: 3 G, BID
     Route: 041
     Dates: start: 20210101, end: 20210114
  5. FLURBIPROFEN AXETIL [Concomitant]
     Active Substance: FLURBIPROFEN AXETIL
     Indication: ANALGESIC THERAPY
     Dosage: 0.075 G, BID
     Route: 041
     Dates: start: 202012
  6. SODIUM VALPROATE [Suspect]
     Active Substance: VALPROATE SODIUM
     Indication: NUTRITIONAL SUPPLEMENTATION
     Dosage: 0.5 G, BID
     Route: 048
     Dates: start: 20201230
  7. CEFTEZOLE [Suspect]
     Active Substance: CEFTEZOLE SODIUM
     Indication: ANTI-INFECTIVE THERAPY
     Dosage: 3 G, BID
     Route: 041
     Dates: start: 20210120

REACTIONS (4)
  - Toxic epidermal necrolysis [Fatal]
  - Dermatitis exfoliative generalised [Fatal]
  - Dermatitis bullous [Fatal]
  - Acquired epidermolysis bullosa [Fatal]

NARRATIVE: CASE EVENT DATE: 20210116
